FAERS Safety Report 8715975 (Version 2)
Quarter: 2012Q4

REPORT INFORMATION
  Report Type: 
  Country: DE (occurrence: DE)
  Receive Date: 20120809
  Receipt Date: 20121105
  Transmission Date: 20130627
  Serious: Yes (Other)
  Sender: FDA-Public Use
  Company Number: DE-B.I. PHARMACEUTICALS,INC./RIDGEFIELD-2012-DE-01806DE

PATIENT
  Age: 64 Year
  Sex: Male
  Weight: 99 kg

DRUGS (3)
  1. MICARDIS 80 MG [Suspect]
     Dosage: 1 anz
     Dates: start: 2004
  2. AMLODIPINE [Suspect]
  3. MOBEC [Suspect]

REACTIONS (2)
  - Oedema [Recovered/Resolved]
  - Hypertensive crisis [Recovered/Resolved]
